FAERS Safety Report 11876353 (Version 1)
Quarter: 2015Q4

REPORT INFORMATION
  Report Type: Spontaneous
  Country: MY (occurrence: MY)
  Receive Date: 20151229
  Receipt Date: 20151229
  Transmission Date: 20160305
  Serious: Yes (Hospitalization, Disabling, Other)
  Sender: FDA-Public Use
  Company Number: MY-CORDEN PHARMA LATINA S.P.A.-MY-2015COR000251

PATIENT
  Age: 7 Year
  Sex: Male

DRUGS (3)
  1. CYTARABINE. [Suspect]
     Active Substance: CYTARABINE
     Indication: LEUKAEMIA
     Dosage: HIGH DOSE
     Route: 042
  2. DAUNORUBICIN [Suspect]
     Active Substance: DAUNORUBICIN
     Indication: LEUKAEMIA
     Dosage: UNK
     Route: 042
  3. ETOPOSIDE. [Suspect]
     Active Substance: ETOPOSIDE
     Indication: LEUKAEMIA
     Dosage: UNK
     Route: 042

REACTIONS (8)
  - Hypertension [Unknown]
  - Sepsis [Unknown]
  - Cytotoxic oedema [Unknown]
  - Febrile neutropenia [Unknown]
  - Quadriplegia [Not Recovered/Not Resolved]
  - Posterior reversible encephalopathy syndrome [Unknown]
  - Epilepsy [Unknown]
  - Blindness cortical [Unknown]
